FAERS Safety Report 17764154 (Version 2)
Quarter: 2020Q2

REPORT INFORMATION
  Report Type: Spontaneous
  Country: CN (occurrence: CN)
  Receive Date: 20200511
  Receipt Date: 20200512
  Transmission Date: 20200714
  Serious: Yes (Other)
  Sender: FDA-Public Use
  Company Number: CN-PFIZER INC-2020184491

PATIENT
  Age: 2 Month
  Sex: Male
  Weight: 2.3 kg

DRUGS (2)
  1. MEPEM [Suspect]
     Active Substance: MEROPENEM
     Indication: ANTI-INFECTIVE THERAPY
  2. MEPEM [Suspect]
     Active Substance: MEROPENEM
     Indication: PNEUMONITIS
     Dosage: 0.1 G, 3X/DAY (0.1G INTRAVENOUSLY FOR 3 HOURS Q8H)
     Route: 041
     Dates: start: 20200327, end: 20200407

REACTIONS (2)
  - Candida infection [Recovered/Resolved]
  - Platelet count decreased [Recovered/Resolved]

NARRATIVE: CASE EVENT DATE: 20200407
